FAERS Safety Report 14065007 (Version 1)
Quarter: 2017Q4

REPORT INFORMATION
  Report Type: Spontaneous
  Country: US (occurrence: US)
  Receive Date: 20171009
  Receipt Date: 20171009
  Transmission Date: 20180321
  Serious: Yes (Other)
  Sender: FDA-Public Use
  Company Number: US-BAYER-2017-192332

PATIENT
  Age: 33 Year
  Sex: Female

DRUGS (1)
  1. MIRENA [Suspect]
     Active Substance: LEVONORGESTREL
     Dosage: 20 MCG/24HR, CONT
     Route: 015
     Dates: start: 201003, end: 20140911

REACTIONS (5)
  - Visual impairment [None]
  - Headache [None]
  - Tinnitus [None]
  - Intracranial pressure increased [None]
  - Papilloedema [None]

NARRATIVE: CASE EVENT DATE: 20140820
